FAERS Safety Report 9820898 (Version 1)
Quarter: 2013Q4

REPORT INFORMATION
  Report Type: Spontaneous
  Country: US (occurrence: None)
  Receive Date: 20131025
  Receipt Date: 20131025
  Transmission Date: 20140711
  Serious: Yes (Other)
  Sender: FDA-Public Use
  Company Number: AP356-00007-SPO-US

PATIENT
  Sex: Female

DRUGS (1)
  1. BELVIQ [Suspect]
     Indication: WEIGHT DECREASED
     Dosage: 20 MG, 2 IN 1 D, ORAL
     Route: 048
     Dates: start: 20130621

REACTIONS (6)
  - Hiccups [None]
  - Fatigue [None]
  - Headache [None]
  - Muscle spasms [None]
  - Nausea [None]
  - Constipation [None]
